FAERS Safety Report 6182891-X (Version None)
Quarter: 2009Q2

REPORT INFORMATION
  Report Type: 
  Country: None (occurrence: None)
  Receive Date: 20090507
  Receipt Date: 20090428
  Transmission Date: 20091009
  Serious: Yes (Hospitalization, Other)
  Sender: FDA-Public Use
  Company Number: ES-MERCK-0904ESP00064

PATIENT
  Age: 29 Year
  Sex: Female

DRUGS (6)
  1. ZOCOR [Suspect]
     Route: 048
     Dates: start: 20050504, end: 20050519
  2. ALLOPURINOL [Suspect]
     Indication: HYPERURICAEMIA
     Route: 048
     Dates: start: 20050504, end: 20050519
  3. PREDNISONE [Concomitant]
     Indication: RENAL TRANSPLANT
     Route: 048
     Dates: start: 20000401
  4. DARBEPOETIN ALFA [Concomitant]
     Indication: NEPHROGENIC ANAEMIA
     Route: 058
  5. TACROLIMUS [Concomitant]
     Indication: RENAL TRANSPLANT
     Route: 048
     Dates: start: 20000401
  6. ACENOCOUMAROL [Concomitant]
     Route: 048

REACTIONS (2)
  - KERATITIS [None]
  - TOXIC EPIDERMAL NECROLYSIS [None]
